FAERS Safety Report 6431164-6 (Version None)
Quarter: 2009Q4

REPORT INFORMATION
  Report Type: 
  Country: None (occurrence: None)
  Receive Date: 20091106
  Receipt Date: 20091103
  Transmission Date: 20100525
  Serious: Yes (Death, Hospitalization)
  Sender: FDA-Public Use
  Company Number: DE-AMGEN-UK367923

PATIENT
  Sex: Female

DRUGS (15)
  1. MIMPARA [Suspect]
     Indication: HYPERPARATHYROIDISM SECONDARY
     Route: 048
     Dates: start: 20081229, end: 20090715
  2. MARCUMAR [Concomitant]
  3. TORASEMIDE [Concomitant]
  4. FENISTIL [Concomitant]
  5. NULYTELY [Concomitant]
  6. LYRICA [Concomitant]
  7. OMEPRAZOLE [Concomitant]
  8. METAMIZOLE [Concomitant]
  9. PREDNISOLONE [Concomitant]
  10. ZOLPIDEM [Concomitant]
  11. ORAMORPH SR [Concomitant]
     Route: 048
  12. FENTANYL-100 [Concomitant]
     Route: 062
  13. CALCITRIOL [Concomitant]
  14. BENSERAZIDE HYDROCHLORIDE/LEVODOPA [Concomitant]
  15. CODEINE [Concomitant]

REACTIONS (2)
  - BILE DUCT CANCER [None]
  - PNEUMONIA [None]
